FAERS Safety Report 8492709-8 (Version None)
Quarter: 2012Q3

REPORT INFORMATION
  Report Type: 
  Country: None (occurrence: None)
  Receive Date: 20120706
  Receipt Date: 20120623
  Transmission Date: 20120928
  Serious: Yes (Hospitalization)
  Sender: FDA-Public Use
  Company Number: US-ROCHE-1040361

PATIENT
  Age: 54 Year
  Sex: Male
  Weight: 101.7 kg

DRUGS (3)
  1. ACTEMRA [Suspect]
     Indication: RHEUMATOID ARTHRITIS
     Dosage: DATE OF LAST DOSE PRIOR TO SAE: 16/AUG/2011
     Route: 058
     Dates: start: 20110325
  2. ACTEMRA [Suspect]
     Dosage: LAST DOSE PRIOR TO SAE ON 16 AUGUST 2011.
     Route: 042
     Dates: start: 20110325
  3. ACTEMRA [Suspect]
     Indication: RHEUMATOID ARTHRITIS
     Dosage: DATE OF LAST DOSE PRIOR TO SAE: 06/DEC/2011
     Route: 058
     Dates: start: 20110916

REACTIONS (2)
  - HYPERLIPIDAEMIA [None]
  - CHOLELITHIASIS [None]
